FAERS Safety Report 4267534-4 (Version None)
Quarter: 2004Q1

REPORT INFORMATION
  Report Type: 
  Country: None (occurrence: None)
  Receive Date: 20040109
  Receipt Date: 20030812
  Transmission Date: 20041129
  Serious: No
  Sender: FDA-Public Use
  Company Number: US-GLAXOSMITHKLINE-A0422162A

PATIENT
  Age: 40 Year
  Sex: Female

DRUGS (3)
  1. WELLBUTRIN [Suspect]
     Indication: DEPRESSION
     Route: 048
     Dates: end: 20030401
  2. LEXAPRO [Suspect]
     Indication: DEPRESSION
     Dosage: 10MG UNKNOWN
     Route: 048
     Dates: start: 20030428
  3. BUSPAR [Concomitant]

REACTIONS (1)
  - NEPHROLITHIASIS [None]
